FAERS Safety Report 14531291 (Version 2)
Quarter: 2018Q2

REPORT INFORMATION
  Report Type: Spontaneous
  Country: FR (occurrence: FR)
  Receive Date: 20180214
  Receipt Date: 20180405
  Transmission Date: 20180711
  Serious: Yes (Hospitalization, Other)
  Sender: FDA-Public Use
  Company Number: FR-ALSI-201800113

PATIENT
  Age: 84 Year
  Sex: Female

DRUGS (1)
  1. OXYGENE MEDICINAL ALSF 200 BAR, GAZ POUR INHALATION, EN BOUTEILLE OXYGEN [Suspect]
     Active Substance: OXYGEN
     Indication: OXYGEN SATURATION DECREASED
     Route: 055
     Dates: start: 20180122, end: 20180122

REACTIONS (10)
  - Product quality issue [Unknown]
  - Agitation [None]
  - Accidental underdose [Unknown]
  - Incorrect dose administered by device [None]
  - Oxygen saturation decreased [Unknown]
  - Hyperhidrosis [None]
  - General physical health deterioration [None]
  - Device occlusion [None]
  - Acute pulmonary oedema [None]
  - Condition aggravated [None]

NARRATIVE: CASE EVENT DATE: 20180122
